FAERS Safety Report 18965015 (Version 1)
Quarter: 2021Q1

REPORT INFORMATION
  Report Type: Spontaneous
  Country: US (occurrence: US)
  Receive Date: 20210303
  Receipt Date: 20210303
  Transmission Date: 20210420
  Serious: No
  Sender: FDA-Public Use
  Company Number: US-AMNEAL PHARMACEUTICALS-2020-AMRX-01857

PATIENT
  Sex: Male

DRUGS (3)
  1. RYTARY [Suspect]
     Active Substance: CARBIDOPA\LEVODOPA
     Dosage: 36.25/145 MG, 3 CAPSULES, TID
     Route: 048
     Dates: start: 20200624
  2. RYTARY [Suspect]
     Active Substance: CARBIDOPA\LEVODOPA
     Dosage: 61.25/245 MG, 10 CAPSULES, QD (3 CAPS FOR FIRST DOSE, FOLLOWED BY 2, THEN 3, THEN 2 CAPS DAILY)
     Route: 048
     Dates: start: 20200730
  3. RYTARY [Suspect]
     Active Substance: CARBIDOPA\LEVODOPA
     Indication: PRODUCT USED FOR UNKNOWN INDICATION
     Dosage: 61.25/245 MG, 2 CAPSULES, TID
     Route: 048
     Dates: end: 20200624

REACTIONS (1)
  - Dyskinesia [Unknown]
